FAERS Safety Report 7783514-6 (Version None)
Quarter: 2011Q3

REPORT INFORMATION
  Report Type: 
  Country: None (occurrence: None)
  Receive Date: 20110928
  Receipt Date: 20110921
  Transmission Date: 20111222
  Serious: Yes (Hospitalization)
  Sender: FDA-Public Use
  Company Number: US-AMGEN-USASP2011048913

PATIENT

DRUGS (1)
  1. ARANESP [Suspect]
     Indication: BLOOD DISORDER

REACTIONS (1)
  - FALL [None]
